FAERS Safety Report 6643507-9 (Version None)
Quarter: 2010Q1

REPORT INFORMATION
  Report Type: 
  Country: None (occurrence: None)
  Receive Date: 20100319
  Receipt Date: 20100312
  Transmission Date: 20100710
  Serious: Yes (Other)
  Sender: FDA-Public Use
  Company Number: US-AMGEN-QUU361698

PATIENT
  Sex: Female

DRUGS (3)
  1. ENBREL [Suspect]
     Indication: RHEUMATOID ARTHRITIS
     Route: 058
     Dates: start: 20040901
  2. METHOTREXATE [Concomitant]
  3. FOLIC ACID [Concomitant]

REACTIONS (9)
  - ARTHRALGIA [None]
  - BURSA INJURY [None]
  - DIZZINESS [None]
  - FINGER DEFORMITY [None]
  - HEADACHE [None]
  - JOINT EFFUSION [None]
  - JOINT SWELLING [None]
  - MENISCUS LESION [None]
  - NAUSEA [None]
